FAERS Safety Report 23552875 (Version 1)
Quarter: 2024Q1

REPORT INFORMATION
  Report Type: Spontaneous
  Country: US (occurrence: None)
  Receive Date: 20240221
  Receipt Date: 20240221
  Transmission Date: 20240409
  Serious: Yes (unspecified)
  Sender: FDA-Public Use
  Company Number: None

PATIENT
  Age: 64 Year
  Sex: Male

DRUGS (2)
  1. LENALIDOMIDE [Suspect]
     Active Substance: LENALIDOMIDE
     Indication: 5q minus syndrome
     Dosage: OTHER FREQUENCY : QD FOR 28 DAYS;?
  2. LENALIDOMIDE [Suspect]
     Active Substance: LENALIDOMIDE
     Indication: Chromosome analysis abnormal

REACTIONS (7)
  - Feeling abnormal [None]
  - Fatigue [None]
  - Dyspnoea [None]
  - Heart rate irregular [None]
  - Oedema peripheral [None]
  - Cardiac failure congestive [None]
  - Cerebrovascular accident [None]

NARRATIVE: CASE EVENT DATE: 20240207
